FAERS Safety Report 16045003 (Version 2)
Quarter: 2019Q1

REPORT INFORMATION
  Report Type: Spontaneous
  Country: AU (occurrence: AU)
  Receive Date: 20190307
  Receipt Date: 20190322
  Transmission Date: 20190418
  Serious: Yes (Other)
  Sender: FDA-Public Use
  Company Number: AU-SUN PHARMACEUTICAL INDUSTRIES LTD-2019RR-201042

PATIENT
  Age: 50 Year
  Sex: Male

DRUGS (1)
  1. IMATINIB NOVARTIS [Suspect]
     Active Substance: IMATINIB
     Indication: CHRONIC MYELOID LEUKAEMIA
     Dosage: 400 MILLIGRAM, DAILY
     Route: 065

REACTIONS (3)
  - Gastrointestinal toxicity [Unknown]
  - Therapeutic response delayed [Unknown]
  - Fatigue [Unknown]
